FAERS Safety Report 22359805 (Version 1)
Quarter: 2023Q2

REPORT INFORMATION
  Report Type: Spontaneous
  Country: GB (occurrence: GB)
  Receive Date: 20230524
  Receipt Date: 20230524
  Transmission Date: 20230722
  Serious: Yes (Other)
  Sender: FDA-Public Use
  Company Number: GB-NOVOPROD-1055848

PATIENT
  Age: 56 Year
  Sex: Female

DRUGS (7)
  1. WARFARIN [Suspect]
     Active Substance: WARFARIN
     Indication: Product used for unknown indication
     Dosage: 2.5 MILLIGRAM DAILY; QD
     Route: 048
  2. WARFARIN [Suspect]
     Active Substance: WARFARIN
     Dosage: QOD (6.5MG ALTERNATING WITH 7MG EACH DAY.)
     Route: 048
     Dates: start: 20230504
  3. WARFARIN [Suspect]
     Active Substance: WARFARIN
     Dosage: QOD ((6.5MG ALTERNATING WITH 7MG EACH DAY.))
     Route: 048
  4. WARFARIN [Suspect]
     Active Substance: WARFARIN
     Dosage: 8 MILLIGRAM DAILY; QD
     Route: 048
  5. SAXENDA [Interacting]
     Active Substance: LIRAGLUTIDE
     Indication: Weight control
     Dosage: 1.8 MILLIGRAM DAILY; QD
     Route: 058
  6. SAXENDA [Interacting]
     Active Substance: LIRAGLUTIDE
     Dosage: .6 MILLIGRAM DAILY; QD
     Route: 058
     Dates: start: 20230317
  7. SAXENDA [Interacting]
     Active Substance: LIRAGLUTIDE
     Dosage: 1.8 MG, QOD
     Route: 058

REACTIONS (3)
  - Drug interaction [Unknown]
  - International normalised ratio increased [Recovering/Resolving]
  - Inappropriate schedule of product administration [Unknown]
